FAERS Safety Report 16736082 (Version 6)
Quarter: 2025Q3

REPORT INFORMATION
  Report Type: Spontaneous
  Country: EU (occurrence: EU)
  Receive Date: 20190823
  Receipt Date: 20250926
  Transmission Date: 20251021
  Serious: Yes (Death, Life-Threatening, Hospitalization, Other)
  Sender: OTSUKA
  Company Number: EU-OTSUKA-2019_030019

PATIENT
  Age: 65 Year
  Sex: Female

DRUGS (10)
  1. ARIPIPRAZOLE [Suspect]
     Active Substance: ARIPIPRAZOLE
     Indication: Mental disorder
     Dosage: 15 MG, QD (1X/DAY)
     Route: 065
  2. NEFOPAM [Suspect]
     Active Substance: NEFOPAM
     Indication: Analgesic therapy
     Dosage: 60 MG, QD
     Route: 048
  3. NEFOPAM [Suspect]
     Active Substance: NEFOPAM
     Dosage: 30 MG, QD (PER DAY)
     Route: 048
  4. NEFOPAM [Suspect]
     Active Substance: NEFOPAM
     Dosage: 120 MG, QD
     Route: 048
  5. BUPROPION [Suspect]
     Active Substance: BUPROPION
     Indication: Mental disorder
     Dosage: 300 MG, QD (1X/DAY)
     Route: 065
  6. AMITRIPTYLINE [Suspect]
     Active Substance: AMITRIPTYLINE
     Indication: Mental disorder
     Dosage: 75 MG, QD (PER DAY)
     Route: 065
  7. MIRTAZAPINE [Suspect]
     Active Substance: MIRTAZAPINE
     Indication: Mental disorder
     Dosage: 15 MG, QD, 1X/DAY
     Route: 048
  8. TRAMADOL HYDROCHLORIDE [Suspect]
     Active Substance: TRAMADOL HYDROCHLORIDE
     Indication: Mental disorder
     Dosage: 300 MG, QD (1X/DAY)
     Route: 065
  9. AMISULPRIDE [Suspect]
     Active Substance: AMISULPRIDE
     Indication: Mental disorder
     Dosage: 50 MG, QD (1X/DAY)
     Route: 065
  10. DIAZEPAM [Suspect]
     Active Substance: DIAZEPAM
     Indication: Product used for unknown indication
     Route: 065

REACTIONS (13)
  - Shock [Fatal]
  - Serotonin syndrome [Fatal]
  - Autonomic nervous system imbalance [Fatal]
  - Dyspnoea [Fatal]
  - Myoclonus [Fatal]
  - Mydriasis [Fatal]
  - Hyperhidrosis [Fatal]
  - Haemodynamic instability [Unknown]
  - Supraventricular tachycardia [Unknown]
  - Hyperlactacidaemia [Unknown]
  - Chronic obstructive pulmonary disease [Not Recovered/Not Resolved]
  - Loss of consciousness [Unknown]
  - Respiratory failure [Unknown]
